FAERS Safety Report 6373619-9 (Version None)
Quarter: 2009Q3

REPORT INFORMATION
  Report Type: 
  Country: None (occurrence: None)
  Receive Date: 20090924
  Receipt Date: 20090916
  Transmission Date: 20100115
  Serious: Yes (Hospitalization, Other)
  Sender: FDA-Public Use
  Company Number: US-PFIZER INC-2009207488

PATIENT
  Sex: Female
  Weight: 93 kg

DRUGS (4)
  1. PROVERA [Suspect]
     Indication: HORMONE REPLACEMENT THERAPY
     Dosage: 10 MG, UNK
     Route: 048
     Dates: start: 19950401, end: 19951101
  2. PREMARIN [Suspect]
     Indication: HORMONE REPLACEMENT THERAPY
     Dosage: 1.25 MG, UNK
     Dates: start: 19950401, end: 19951101
  3. PREMPRO [Suspect]
     Indication: HORMONE REPLACEMENT THERAPY
     Dosage: 0.625/2.5 MG UNK
     Dates: start: 19951101, end: 19980101
  4. CALAN [Concomitant]
     Indication: HYPERTENSION
     Dosage: 240 MG, UNK

REACTIONS (2)
  - DIABETES MELLITUS [None]
  - THROMBOSIS [None]
